FAERS Safety Report 7334806-6 (Version None)
Quarter: 2011Q1

REPORT INFORMATION
  Report Type: 
  Country: None (occurrence: None)
  Receive Date: 20110307
  Receipt Date: 20110221
  Transmission Date: 20110831
  Serious: Yes (Disabling)
  Sender: FDA-Public Use
  Company Number: FR-CELGENEUS-056-21880-10100693

PATIENT
  Sex: Male

DRUGS (5)
  1. OMEPRAZOLE [Concomitant]
     Indication: GASTRITIS
     Dosage: 20 MILLIGRAM
     Route: 048
     Dates: start: 20090101
  2. REVLIMID [Suspect]
     Dosage: 10 MILLIGRAM
     Route: 048
     Dates: start: 20100921, end: 20100930
  3. PREVISCAN [Concomitant]
     Indication: CARDIAC DISORDER
     Dosage: .5 DOSAGE FORMS
     Route: 048
     Dates: start: 20100201
  4. COREG [Concomitant]
     Indication: HYPERTENSION
     Dosage: 160 MILLIGRAM
     Route: 048
     Dates: start: 20090101
  5. FUROSEMIDE [Concomitant]
     Indication: CARDIAC DISORDER
     Route: 065
     Dates: start: 20100101

REACTIONS (1)
  - HYPERTHYROIDISM [None]
